FAERS Safety Report 16464344 (Version 2)
Quarter: 2020Q2

REPORT INFORMATION
  Report Type: Spontaneous
  Country: US (occurrence: US)
  Receive Date: 20190621
  Receipt Date: 20200616
  Transmission Date: 20200713
  Serious: No
  Sender: FDA-Public Use
  Company Number: US-ASTELLAS-2019US019217

PATIENT
  Age: 63 Year
  Sex: Female

DRUGS (3)
  1. HCTZ [Concomitant]
     Active Substance: HYDROCHLOROTHIAZIDE
     Indication: PRODUCT USED FOR UNKNOWN INDICATION
     Dosage: 12.5 MG, ONCE DAILY (MORNING)
     Route: 065
  2. VESICARE [Suspect]
     Active Substance: SOLIFENACIN SUCCINATE
     Indication: INCONTINENCE
     Dosage: 5 MG, ONCE DAILY (NIGHT)
     Route: 065
  3. VESICARE [Suspect]
     Active Substance: SOLIFENACIN SUCCINATE
     Indication: BLADDER SPASM

REACTIONS (3)
  - Chest pain [Unknown]
  - Inability to afford medication [Unknown]
  - Dry mouth [Unknown]
